FAERS Safety Report 11169732 (Version 1)
Quarter: 2015Q2

REPORT INFORMATION
  Report Type: Spontaneous
  Country: US (occurrence: None)
  Receive Date: 20150604
  Receipt Date: 20150604
  Transmission Date: 20150821
  Serious: Yes (Hospitalization)
  Sender: FDA-Public Use
  Company Number: US-H14001-15-00824

PATIENT
  Sex: Female

DRUGS (4)
  1. HALOPERIDOL DECANOATE. [Suspect]
     Active Substance: HALOPERIDOL DECANOATE
     Indication: SCHIZOPHRENIA
     Dosage: 1 IN 4 WK
     Route: 030
  2. BENZTROPINE (BENZTROPINE MESILATE) [Concomitant]
  3. FLUVOXAMINE [Concomitant]
     Active Substance: FLUVOXAMINE
  4. DONEPEZIL [Suspect]
     Active Substance: DONEPEZIL
     Indication: DEMENTIA

REACTIONS (2)
  - Drug interaction [None]
  - Neuroleptic malignant syndrome [None]
